FAERS Safety Report 10081538 (Version 1)
Quarter: 2014Q2

REPORT INFORMATION
  Report Type: Spontaneous
  Country: US (occurrence: US)
  Receive Date: 20140416
  Receipt Date: 20140416
  Transmission Date: 20141212
  Serious: Yes (Hospitalization, Other)
  Sender: FDA-Public Use
  Company Number: US-PFIZER INC-2014106575

PATIENT
  Age: 51 Year
  Sex: Female
  Weight: 145.13 kg

DRUGS (4)
  1. LYRICA [Suspect]
     Indication: NEUROPATHIC ARTHROPATHY
     Dosage: 150 MG, 3X/DAY
     Dates: start: 201006
  2. LYRICA [Suspect]
     Indication: NEUROPATHY PERIPHERAL
  3. AMARYL [Concomitant]
     Indication: DIABETES MELLITUS
     Dosage: 4 MG, 2X/DAY
  4. TENORETIC [Concomitant]
     Indication: HYPERTENSION
     Dosage: 50/25, DAILY

REACTIONS (4)
  - Wound [Not Recovered/Not Resolved]
  - Wound infection [Unknown]
  - Escherichia infection [Unknown]
  - Staphylococcal infection [Unknown]
